FAERS Safety Report 19987441 (Version 1)
Quarter: 2021Q4

REPORT INFORMATION
  Report Type: Spontaneous
  Country: US (occurrence: US)
  Receive Date: 20211022
  Receipt Date: 20211022
  Transmission Date: 20220304
  Serious: No
  Sender: FDA-Public Use
  Company Number: US-ABBVIE-21K-163-4054927-00

PATIENT
  Age: 72 Year
  Sex: Female
  Weight: 73.09 kg

DRUGS (5)
  1. TARKA [Suspect]
     Active Substance: TRANDOLAPRIL\VERAPAMIL HYDROCHLORIDE
     Indication: Hypertension
     Dosage: CHANGED TO GENERIC
     Route: 048
     Dates: start: 2005, end: 20210819
  2. TRANDOLAPRIL\VERAPAMIL [Suspect]
     Active Substance: TRANDOLAPRIL\VERAPAMIL
     Indication: Hypertension
     Route: 048
     Dates: start: 20210820
  3. ONE A DAY MULTI VITAMIN [Concomitant]
     Indication: Supplementation therapy
  4. MODERNA COVID-19 VACCINE [Concomitant]
     Active Substance: CX-024414
     Indication: COVID-19 immunisation
     Dosage: MODERNA MANUFACTURER
     Route: 030
     Dates: start: 20210107, end: 20210107
  5. MODERNA COVID-19 VACCINE [Concomitant]
     Active Substance: CX-024414
     Dosage: MODERNA MANUFACTURER
     Route: 030
     Dates: start: 20210204, end: 20210204

REACTIONS (3)
  - Depressed mood [Not Recovered/Not Resolved]
  - Headache [Not Recovered/Not Resolved]
  - Dizziness [Not Recovered/Not Resolved]

NARRATIVE: CASE EVENT DATE: 20210820
